FAERS Safety Report 25231032 (Version 1)
Quarter: 2025Q2

REPORT INFORMATION
  Report Type: Spontaneous
  Country: US (occurrence: US)
  Receive Date: 20250423
  Receipt Date: 20250423
  Transmission Date: 20250716
  Serious: No
  Sender: SANOFI AVENTIS
  Company Number: US-SA-2025SA117204

PATIENT
  Sex: Male
  Weight: 81 kg

DRUGS (9)
  1. KEVZARA [Suspect]
     Active Substance: SARILUMAB
     Indication: Polymyalgia rheumatica
     Dosage: 200 MG, QOW
     Route: 058
     Dates: start: 20250225
  2. NAPROXEN [Concomitant]
     Active Substance: NAPROXEN
  3. TYLENOL [Concomitant]
     Active Substance: ACETAMINOPHEN
  4. GABAPENTIN [Concomitant]
     Active Substance: GABAPENTIN
  5. COLCHICINE [Concomitant]
     Active Substance: COLCHICINE
  6. METOPROLOL SUCCINATE [Concomitant]
     Active Substance: METOPROLOL SUCCINATE
  7. ATORVASTATIN CALCIUM [Concomitant]
     Active Substance: ATORVASTATIN CALCIUM
  8. PREDNISONE [Concomitant]
     Active Substance: PREDNISONE
  9. OMEPRAZOLE [Concomitant]
     Active Substance: OMEPRAZOLE

REACTIONS (2)
  - Spinal stenosis [Unknown]
  - Back pain [Unknown]
